FAERS Safety Report 9251865 (Version 3)
Quarter: 2013Q3

REPORT INFORMATION
  Report Type: Spontaneous
  Country: US (occurrence: US)
  Receive Date: 20130424
  Receipt Date: 20130927
  Transmission Date: 20140515
  Serious: Yes (Hospitalization)
  Sender: FDA-Public Use
  Company Number: US-ASTRAZENECA-2013SE27402

PATIENT
  Age: 19525 Day
  Sex: Female
  Weight: 68.9 kg

DRUGS (15)
  1. NEXIUM [Suspect]
     Indication: GASTROOESOPHAGEAL REFLUX DISEASE
     Route: 048
     Dates: start: 20040309, end: 2007
  2. NEXIUM [Suspect]
     Indication: GASTROOESOPHAGEAL REFLUX DISEASE
     Route: 048
     Dates: start: 20060419
  3. OMEPRAZOLE [Suspect]
     Route: 048
     Dates: start: 2007
  4. OMEPRAZOLE [Suspect]
     Route: 048
     Dates: start: 2012
  5. PROTONIX [Concomitant]
     Dates: start: 2005
  6. PROTONIX [Concomitant]
     Dates: start: 2008
  7. PREVACID [Concomitant]
  8. RANITIDINE [Concomitant]
     Dates: start: 2005, end: 2012
  9. ALKA SELTZER [Concomitant]
     Indication: HELICOBACTER INFECTION
  10. OXYBUTYNIN [Concomitant]
     Route: 048
     Dates: start: 20060513
  11. FLUCONAZOLE [Concomitant]
     Route: 048
     Dates: start: 20060316
  12. ATENOLOL [Concomitant]
     Route: 048
     Dates: start: 20060316
  13. PROMETHAZINE [Concomitant]
     Indication: VOMITING
     Dosage: TAKE ONE HALF TO ONE TABLET EVERY 6 HOURS
     Route: 048
     Dates: start: 20060327
  14. PROMETHAZINE [Concomitant]
     Indication: NAUSEA
     Dosage: TAKE ONE HALF TO ONE TABLET EVERY 6 HOURS
     Route: 048
     Dates: start: 20060327
  15. TRICOR [Concomitant]
     Route: 048
     Dates: start: 20060327

REACTIONS (19)
  - Foot fracture [Unknown]
  - Ankle fracture [Unknown]
  - Thyroid disorder [Unknown]
  - Post procedural complication [Unknown]
  - Fall [Unknown]
  - Tibia fracture [Unknown]
  - Bone pain [Unknown]
  - Calcium deficiency [Unknown]
  - Cataract [Unknown]
  - Diabetes mellitus [Unknown]
  - Peripheral arterial occlusive disease [Unknown]
  - Sickle cell anaemia [Unknown]
  - Vitamin D deficiency [Unknown]
  - Osteopenia [Unknown]
  - Upper limb fracture [Unknown]
  - Osteoporosis [Unknown]
  - Humerus fracture [Unknown]
  - Bone disorder [Unknown]
  - Hyperparathyroidism [Unknown]
